FAERS Safety Report 5735420-6 (Version None)
Quarter: 2008Q2

REPORT INFORMATION
  Report Type: 
  Country: None (occurrence: None)
  Receive Date: 20080512
  Receipt Date: 20080506
  Transmission Date: 20081010
  Serious: Yes (Hospitalization)
  Sender: FDA-Public Use
  Company Number: US-ASTRAZENECA-2008UW09285

PATIENT
  Age: 16 Year
  Sex: Female

DRUGS (2)
  1. SYMBICORT [Suspect]
     Indication: ASTHMA
     Dosage: 80/4.5 2 PUFFS BID
     Route: 055
     Dates: start: 20080423
  2. LAMITOL [Concomitant]

REACTIONS (3)
  - FEELING JITTERY [None]
  - HYPERTENSION [None]
  - SYNCOPE [None]
